FAERS Safety Report 16912432 (Version 2)
Quarter: 2020Q3

REPORT INFORMATION
  Report Type: Spontaneous
  Country: US (occurrence: US)
  Receive Date: 20191014
  Receipt Date: 20200811
  Transmission Date: 20201102
  Serious: No
  Sender: FDA-Public Use
  Company Number: US-HTU-2019US019133

PATIENT
  Sex: Female

DRUGS (1)
  1. VALCHLOR [Suspect]
     Active Substance: MECHLORETHAMINE
     Indication: CUTANEOUS T-CELL LYMPHOMA
     Dosage: THIN FILM, 3/WEEK
     Route: 061

REACTIONS (6)
  - Skin exfoliation [Unknown]
  - Dry skin [Unknown]
  - Pruritus [Unknown]
  - Skin haemorrhage [Unknown]
  - Off label use [Unknown]
  - Skin atrophy [Unknown]
